FAERS Safety Report 7802988-5 (Version None)
Quarter: 2011Q4

REPORT INFORMATION
  Report Type: 
  Country: None (occurrence: None)
  Receive Date: 20111007
  Receipt Date: 20110927
  Transmission Date: 20120403
  Serious: Yes (Death)
  Sender: FDA-Public Use
  Company Number: IE-BRISTOL-MYERS SQUIBB COMPANY-16107559

PATIENT
  Sex: Female

DRUGS (1)
  1. MEGACE [Suspect]

REACTIONS (2)
  - DEATH [None]
  - VAGINAL DISCHARGE [None]
